FAERS Safety Report 9692371 (Version 2)
Quarter: 2013Q4

REPORT INFORMATION
  Report Type: Spontaneous
  Country: US (occurrence: US)
  Receive Date: 20131118
  Receipt Date: 20131231
  Transmission Date: 20140711
  Serious: No
  Sender: FDA-Public Use
  Company Number: US-PFIZER INC-2013326705

PATIENT
  Age: 62 Year
  Sex: Female
  Weight: 61 kg

DRUGS (3)
  1. ESTRING [Suspect]
     Indication: OESTROGEN REPLACEMENT THERAPY
     Dosage: 2 MG, UNK
     Route: 067
     Dates: start: 201206
  2. CATAFLAM [Concomitant]
     Indication: ARTHRALGIA
     Dosage: 25 MG, 1X/DAY
     Route: 048
     Dates: start: 2004
  3. ESTRADIOL [Concomitant]
     Indication: HORMONE REPLACEMENT THERAPY
     Dosage: 2 MG, 1X/DAY
     Route: 048
     Dates: start: 2001

REACTIONS (2)
  - Drug ineffective [Not Recovered/Not Resolved]
  - Hot flush [Not Recovered/Not Resolved]
